FAERS Safety Report 8876886 (Version 1)
Quarter: 2012Q4

REPORT INFORMATION
  Report Type: 
  Country: CA (occurrence: CA)
  Receive Date: 20121029
  Receipt Date: 20121029
  Transmission Date: 20130627
  Serious: No
  Sender: FDA-Public Use
  Company Number: CA-B.I. PHARMACEUTICALS,INC./RIDGEFIELD-2012-BP-26001BP

PATIENT
  Age: 75 Year
  Sex: Male

DRUGS (1)
  1. MIRAPEX [Suspect]
     Dosage: 0.5 mg
     Dates: start: 20010214, end: 200609

REACTIONS (6)
  - Insomnia [Unknown]
  - Dizziness [Unknown]
  - Nausea [Unknown]
  - Constipation [Unknown]
  - Feeling abnormal [Unknown]
  - Impulse-control disorder [Unknown]
